FAERS Safety Report 13349668 (Version 1)
Quarter: 2017Q1

REPORT INFORMATION
  Report Type: Report from Study
  Country: NL (occurrence: NL)
  Receive Date: 20170320
  Receipt Date: 20170320
  Transmission Date: 20170429
  Serious: Yes (Hospitalization, Other)
  Sender: FDA-Public Use
  Company Number: NL-AMGEN-NLDSL2017039989

PATIENT
  Sex: Female

DRUGS (1)
  1. ARANESP [Suspect]
     Active Substance: DARBEPOETIN ALFA
     Indication: MYELODYSPLASTIC SYNDROME
     Dosage: 150 MCG (500MCG/ML 0.3ML), QWK
     Route: 058

REACTIONS (5)
  - Constipation [Unknown]
  - Malaise [Unknown]
  - Pyrexia [Unknown]
  - Terminal state [Unknown]
  - Off label use [Unknown]
